FAERS Safety Report 8134249-1 (Version None)
Quarter: 2012Q1

REPORT INFORMATION
  Report Type: 
  Country: None (occurrence: None)
  Receive Date: 20120209
  Receipt Date: 20120206
  Transmission Date: 20120608
  Serious: Yes (Death)
  Sender: FDA-Public Use
  Company Number: 2012MA001596

PATIENT
  Age: 80 Year
  Sex: Female

DRUGS (3)
  1. HUMULIN R [Concomitant]
  2. KADIAN [Suspect]
  3. XANAX [Concomitant]

REACTIONS (1)
  - NEOPLASM MALIGNANT [None]
